FAERS Safety Report 13178774 (Version 1)
Quarter: 2017Q1

REPORT INFORMATION
  Report Type: Spontaneous
  Country: US (occurrence: US)
  Receive Date: 20170202
  Receipt Date: 20170202
  Transmission Date: 20170428
  Serious: No
  Sender: FDA-Public Use
  Company Number: US-BAYER-2017-020141

PATIENT
  Sex: Male

DRUGS (1)
  1. CLARITIN KIDS 0.1 % [Suspect]
     Active Substance: LORATADINE
     Route: 065

REACTIONS (1)
  - Accidental exposure to product by child [Unknown]
